FAERS Safety Report 9798729 (Version 2)
Quarter: 2014Q1

REPORT INFORMATION
  Report Type: Spontaneous
  Country: US (occurrence: US)
  Receive Date: 20140106
  Receipt Date: 20140106
  Transmission Date: 20141002
  Serious: No
  Sender: FDA-Public Use
  Company Number: US-GILEAD-2010-0029828

PATIENT
  Sex: Female

DRUGS (5)
  1. LETAIRIS [Suspect]
     Indication: PULMONARY ARTERIAL HYPERTENSION
     Route: 048
     Dates: start: 20100520
  2. PANCREASE MT [Concomitant]
  3. LORAZEPAM [Concomitant]
  4. CEFTRIAXONE [Concomitant]
  5. METHYLPRED [Concomitant]

REACTIONS (4)
  - Abnormal sensation in eye [Unknown]
  - Headache [Unknown]
  - Rhinorrhoea [Unknown]
  - Nasal congestion [Unknown]
